FAERS Safety Report 17514809 (Version 1)
Quarter: 2020Q1

REPORT INFORMATION
  Report Type: Spontaneous
  Country: GB (occurrence: GB)
  Receive Date: 20200309
  Receipt Date: 20200309
  Transmission Date: 20200409
  Serious: Yes (Death)
  Sender: FDA-Public Use
  Company Number: GB-TEVA-2020-GB-1195723

PATIENT
  Age: 58 Year
  Sex: Male
  Weight: 94 kg

DRUGS (13)
  1. COCODAMOL [Concomitant]
     Active Substance: ACETAMINOPHEN\CODEINE PHOSPHATE
     Dosage: 1-2 TABLETS UP TO FOUR TIMES DAILY
     Dates: start: 20200114
  2. NITROFURANTOIN. [Concomitant]
     Active Substance: NITROFURANTOIN
     Dates: start: 20191031
  3. IBUPROFEN. [Concomitant]
     Active Substance: IBUPROFEN
     Dates: start: 20191031
  4. SILDENAFIL. [Concomitant]
     Active Substance: SILDENAFIL
     Dosage: SLS    AS DIRECTED
     Dates: start: 20191031
  5. TAMSULOSIN [Concomitant]
     Active Substance: TAMSULOSIN
     Dosage: AS ADVISED BY UROLOGY
     Dates: start: 20191031
  6. STEXEROL-D3 [Concomitant]
     Dosage: 2 TABLETS ONCE WEEKLY FOR SIX WEEKS THEN ONE MONTHLY
     Dates: start: 20191216
  7. MIRTAZAPINE. [Concomitant]
     Active Substance: MIRTAZAPINE
     Dosage: AT NIGHT
     Dates: start: 20191024
  8. GABAPENTIN. [Concomitant]
     Active Substance: GABAPENTIN
     Dosage: TAKE ONE TAB DAILY FOR THREE DAYS, THE ONE TWICE A DAY FOR THREE DAYS THEN THREE TIMES A DAY FOR THR
     Dates: start: 20191112
  9. FINASTERIDE. [Concomitant]
     Active Substance: FINASTERIDE
     Dates: start: 20191024
  10. TRAMADOL. [Suspect]
     Active Substance: TRAMADOL
     Indication: DYSURIA
     Dosage: 50 MILLIGRAM
     Route: 048
  11. AMITRIPTYLINE [Concomitant]
     Active Substance: AMITRIPTYLINE
     Dosage: AT NIGHT
     Dates: start: 20191024, end: 20191112
  12. OMEPRAZOLE. [Concomitant]
     Active Substance: OMEPRAZOLE
     Dates: start: 20191031
  13. SERTRALINE [Concomitant]
     Active Substance: SERTRALINE HYDROCHLORIDE
     Dates: start: 20191112

REACTIONS (1)
  - Delirium [Fatal]

NARRATIVE: CASE EVENT DATE: 20200114
